FAERS Safety Report 25246153 (Version 1)
Quarter: 2025Q2

REPORT INFORMATION
  Report Type: Spontaneous
  Country: FR (occurrence: FR)
  Receive Date: 20250428
  Receipt Date: 20250428
  Transmission Date: 20250716
  Serious: Yes (Life-Threatening)
  Sender: MYLAN
  Company Number: None

PATIENT
  Sex: Female

DRUGS (20)
  1. ROCURONIUM [Suspect]
     Active Substance: ROCURONIUM BROMIDE
     Indication: Surgery
     Dates: start: 20240415, end: 20240415
  2. ROCURONIUM [Suspect]
     Active Substance: ROCURONIUM BROMIDE
     Route: 065
     Dates: start: 20240415, end: 20240415
  3. ROCURONIUM [Suspect]
     Active Substance: ROCURONIUM BROMIDE
     Route: 065
     Dates: start: 20240415, end: 20240415
  4. ROCURONIUM [Suspect]
     Active Substance: ROCURONIUM BROMIDE
     Dates: start: 20240415, end: 20240415
  5. DEXAMETHASONE [Suspect]
     Active Substance: DEXAMETHASONE
     Indication: Surgery
     Dates: start: 20240415, end: 20240415
  6. DEXAMETHASONE [Suspect]
     Active Substance: DEXAMETHASONE
     Route: 065
     Dates: start: 20240415, end: 20240415
  7. DEXAMETHASONE [Suspect]
     Active Substance: DEXAMETHASONE
     Route: 065
     Dates: start: 20240415, end: 20240415
  8. DEXAMETHASONE [Suspect]
     Active Substance: DEXAMETHASONE
     Dates: start: 20240415, end: 20240415
  9. REMIFENTANIL [Suspect]
     Active Substance: REMIFENTANIL
     Indication: Surgery
     Dates: start: 20240415, end: 20240415
  10. REMIFENTANIL [Suspect]
     Active Substance: REMIFENTANIL
     Route: 065
     Dates: start: 20240415, end: 20240415
  11. REMIFENTANIL [Suspect]
     Active Substance: REMIFENTANIL
     Route: 065
     Dates: start: 20240415, end: 20240415
  12. REMIFENTANIL [Suspect]
     Active Substance: REMIFENTANIL
     Dates: start: 20240415, end: 20240415
  13. PROPOFOL [Suspect]
     Active Substance: PROPOFOL
     Indication: Surgery
     Dates: start: 20240415, end: 20240415
  14. PROPOFOL [Suspect]
     Active Substance: PROPOFOL
     Route: 065
     Dates: start: 20240415, end: 20240415
  15. PROPOFOL [Suspect]
     Active Substance: PROPOFOL
     Route: 065
     Dates: start: 20240415, end: 20240415
  16. PROPOFOL [Suspect]
     Active Substance: PROPOFOL
     Dates: start: 20240415, end: 20240415
  17. LIDOCAINE HYDROCHLORIDE [Suspect]
     Active Substance: LIDOCAINE HYDROCHLORIDE
     Indication: Surgery
     Dates: start: 20240415, end: 20240415
  18. LIDOCAINE HYDROCHLORIDE [Suspect]
     Active Substance: LIDOCAINE HYDROCHLORIDE
     Route: 065
     Dates: start: 20240415, end: 20240415
  19. LIDOCAINE HYDROCHLORIDE [Suspect]
     Active Substance: LIDOCAINE HYDROCHLORIDE
     Route: 065
     Dates: start: 20240415, end: 20240415
  20. LIDOCAINE HYDROCHLORIDE [Suspect]
     Active Substance: LIDOCAINE HYDROCHLORIDE
     Dates: start: 20240415, end: 20240415

REACTIONS (1)
  - Cardio-respiratory arrest [Recovered/Resolved]

NARRATIVE: CASE EVENT DATE: 20240415
